FAERS Safety Report 14805420 (Version 1)
Quarter: 2018Q2

REPORT INFORMATION
  Report Type: Spontaneous
  Country: US (occurrence: US)
  Receive Date: 20180425
  Receipt Date: 20180425
  Transmission Date: 20180711
  Serious: Yes (Other)
  Sender: FDA-Public Use
  Company Number: US-WEST-WARD PHARMACEUTICALS CORP.-US-H14001-18-03074

PATIENT
  Age: 49 Year
  Sex: Male

DRUGS (3)
  1. CYTOXAN [Suspect]
     Active Substance: CYCLOPHOSPHAMIDE
     Indication: CHRONIC AUTOIMMUNE GLOMERULONEPHRITIS
     Route: 065
  2. PREDNISONE. [Suspect]
     Active Substance: PREDNISONE
     Indication: CHRONIC AUTOIMMUNE GLOMERULONEPHRITIS
     Route: 065
  3. SOLU-MEDROL [Concomitant]
     Active Substance: METHYLPREDNISOLONE SODIUM SUCCINATE
     Indication: CHRONIC AUTOIMMUNE GLOMERULONEPHRITIS
     Route: 040

REACTIONS (3)
  - Gastrointestinal ulcer haemorrhage [Unknown]
  - Pancytopenia [Unknown]
  - Gastrointestinal ulcer [Unknown]
